FAERS Safety Report 14750991 (Version 1)
Quarter: 2018Q2

REPORT INFORMATION
  Report Type: Spontaneous
  Country: US (occurrence: US)
  Receive Date: 20180412
  Receipt Date: 20180412
  Transmission Date: 20180711
  Serious: No
  Sender: FDA-Public Use
  Company Number: US-PFIZER INC-2018147673

PATIENT
  Age: 35 Year
  Weight: 83.9 kg

DRUGS (4)
  1. ZYPREXA [Interacting]
     Active Substance: OLANZAPINE
     Indication: ANXIETY
     Dosage: UNK
     Dates: start: 201804
  2. VIAGRA [Suspect]
     Active Substance: SILDENAFIL CITRATE
     Indication: SEXUAL DYSFUNCTION
     Dosage: 100 MG, UNK
     Dates: start: 201804
  3. ZYPREXA [Interacting]
     Active Substance: OLANZAPINE
     Indication: AFFECTIVE DISORDER
  4. ADVIL [Interacting]
     Active Substance: IBUPROFEN
     Indication: SWELLING
     Dosage: UNK

REACTIONS (3)
  - Penis disorder [Unknown]
  - Drug interaction [Unknown]
  - Penile pain [Unknown]

NARRATIVE: CASE EVENT DATE: 201804
